FAERS Safety Report 5311065-7 (Version None)
Quarter: 2007Q2

REPORT INFORMATION
  Report Type: 
  Country: None (occurrence: None)
  Receive Date: 20070423
  Receipt Date: 20070411
  Transmission Date: 20071010
  Serious: Yes (Death, Life-Threatening, Hospitalization, Other)
  Sender: FDA-Public Use
  Company Number: 2007SP004969

PATIENT
  Age: 38 Year
  Sex: Female
  Weight: 34 kg

DRUGS (6)
  1. NOXAFIL [Suspect]
     Indication: BRONCHOPULMONARY ASPERGILLOSIS
     Dosage: 4 ML; QID; PO
     Route: 048
     Dates: start: 20061006, end: 20070207
  2. POSACONAZOLE [Concomitant]
  3. PROGRAF [Concomitant]
  4. SULFADIAZINE [Concomitant]
  5. MEDROL [Concomitant]
  6. MERONEM /01250501/ [Concomitant]

REACTIONS (5)
  - ACUTE RESPIRATORY FAILURE [None]
  - CONDITION AGGRAVATED [None]
  - PNEUMONIA BACTERIAL [None]
  - PNEUMONIA FUNGAL [None]
  - RESPIRATORY ARREST [None]
